FAERS Safety Report 11163414 (Version 2)
Quarter: 2016Q2

REPORT INFORMATION
  Report Type: Spontaneous
  Country: US (occurrence: US)
  Receive Date: 20150604
  Receipt Date: 20160524
  Transmission Date: 20160815
  Serious: Yes (Hospitalization)
  Sender: FDA-Public Use
  Company Number: US-SA-2015SA030068

PATIENT
  Age: 16 Year
  Sex: Male

DRUGS (2)
  1. SOLOSTAR [Concomitant]
     Active Substance: DEVICE
     Dates: start: 201502
  2. LANTUS SOLOSTAR [Suspect]
     Active Substance: INSULIN GLARGINE
     Indication: TYPE 1 DIABETES MELLITUS
     Dosage: DOSE:64 UNIT(S)
     Route: 065
     Dates: start: 201502

REACTIONS (4)
  - Blood glucose increased [Unknown]
  - Drug ineffective [Unknown]
  - Urine ketone body present [Unknown]
  - Injection site pain [Unknown]

NARRATIVE: CASE EVENT DATE: 2015
